FAERS Safety Report 20590162 (Version 2)
Quarter: 2022Q1

REPORT INFORMATION
  Report Type: Spontaneous
  Country: US (occurrence: US)
  Receive Date: 20220314
  Receipt Date: 20220316
  Transmission Date: 20220423
  Serious: No
  Sender: FDA-Public Use
  Company Number: US-NOVARTISTESTPH-NVSC2022US058819

PATIENT
  Age: 3 Year

DRUGS (1)
  1. MEKINIST [Suspect]
     Active Substance: TRAMETINIB DIMETHYL SULFOXIDE
     Indication: Heart disease congenital
     Dosage: UNK
     Route: 065
     Dates: start: 2021

REACTIONS (2)
  - Product use in unapproved indication [Unknown]
  - Product use issue [Unknown]
